FAERS Safety Report 4877298-9 (Version None)
Quarter: 2006Q1

REPORT INFORMATION
  Report Type: 
  Country: None (occurrence: None)
  Receive Date: 20060109
  Receipt Date: 20051227
  Transmission Date: 20060701
  Serious: Yes (Other)
  Sender: FDA-Public Use
  Company Number: 2005-136239-NL

PATIENT
  Age: 30 Year
  Sex: Female

DRUGS (2)
  1. NUVARING [Suspect]
     Indication: CONTRACEPTION
  2. NICOTINE PATCH TRANSDERMAL [Suspect]
     Indication: SMOKING CESSATION THERAPY
     Dosage: 21 MG DAILY TRANSDERMAL
     Route: 062
     Dates: start: 20051213, end: 20051215

REACTIONS (8)
  - ABNORMAL DREAMS [None]
  - DIZZINESS [None]
  - FATIGUE [None]
  - HALLUCINATION, VISUAL [None]
  - HEART RATE INCREASED [None]
  - HYPERHIDROSIS [None]
  - PALPITATIONS [None]
  - VAGINAL HAEMORRHAGE [None]
